FAERS Safety Report 22391545 (Version 1)
Quarter: 2023Q2

REPORT INFORMATION
  Report Type: Spontaneous
  Country: RO (occurrence: RO)
  Receive Date: 20230601
  Receipt Date: 20230601
  Transmission Date: 20230722
  Serious: Yes (Other)
  Sender: FDA-Public Use
  Company Number: RO-PFIZER INC-PV202300079225

PATIENT
  Age: 67 Year
  Sex: Female
  Weight: 90 kg

DRUGS (1)
  1. ENBREL [Suspect]
     Active Substance: ETANERCEPT
     Indication: Rheumatoid arthritis
     Dosage: UNK
     Route: 065

REACTIONS (9)
  - Intervertebral disc protrusion [Unknown]
  - C-reactive protein increased [Unknown]
  - Malaise [Unknown]
  - Gait inability [Unknown]
  - Arthropathy [Unknown]
  - Ill-defined disorder [Unknown]
  - Sensitivity to weather change [Unknown]
  - Pain [Recovered/Resolved]
  - Arthralgia [Recovered/Resolved]
